FAERS Safety Report 8455653-8 (Version None)
Quarter: 2012Q2

REPORT INFORMATION
  Report Type: 
  Country: None (occurrence: None)
  Receive Date: 20120621
  Receipt Date: 20120613
  Transmission Date: 20120825
  Serious: No
  Sender: FDA-Public Use
  Company Number: US-BAYER-2012-059855

PATIENT
  Age: 80 Year
  Sex: Female
  Weight: 62.132 kg

DRUGS (5)
  1. LUMIGAN [Concomitant]
     Route: 047
  2. ALEVE (CAPLET) [Suspect]
     Indication: BACK PAIN
     Dosage: BOTTLE COUNT 24S
     Route: 048
     Dates: start: 20120613
  3. ULTRAM [Concomitant]
  4. ROBAXIN [Concomitant]
  5. ZOLPIDEM TARTRATE [Concomitant]

REACTIONS (2)
  - DIZZINESS [None]
  - VISION BLURRED [None]
